FAERS Safety Report 20904996 (Version 2)
Quarter: 2022Q2

REPORT INFORMATION
  Report Type: Spontaneous
  Country: JP (occurrence: JP)
  Receive Date: 20220602
  Receipt Date: 20220616
  Transmission Date: 20220721
  Serious: Yes (Other)
  Sender: FDA-Public Use
  Company Number: JP-CHUGAI-2022019652

PATIENT
  Age: 65 Year
  Sex: Female

DRUGS (1)
  1. KADCYLA [Suspect]
     Active Substance: ADO-TRASTUZUMAB EMTANSINE
     Indication: Breast cancer
     Dosage: UNK
     Route: 041

REACTIONS (3)
  - Decreased appetite [Unknown]
  - Sepsis [Not Recovered/Not Resolved]
  - Metastases to central nervous system [Unknown]

NARRATIVE: CASE EVENT DATE: 20220520
